FAERS Safety Report 7714463-7 (Version None)
Quarter: 2011Q3

REPORT INFORMATION
  Report Type: 
  Country: None (occurrence: None)
  Receive Date: 20110829
  Receipt Date: 20110823
  Transmission Date: 20111222
  Serious: Yes (Hospitalization, Other)
  Sender: FDA-Public Use
  Company Number: US-BAYER-2011-058267

PATIENT
  Age: 55 Year
  Sex: Male

DRUGS (3)
  1. ANALGESICS [Concomitant]
  2. ANTIEMETICS AND ANTINAUSEANTS [Concomitant]
  3. NEXAVAR [Suspect]
     Indication: RENAL CELL CARCINOMA
     Dosage: 400 MG, BID
     Route: 048
     Dates: start: 20110615

REACTIONS (7)
  - NAUSEA [None]
  - LETHARGY [None]
  - DYSPNOEA [None]
  - GASTROINTESTINAL MOTILITY DISORDER [None]
  - FATIGUE [None]
  - PNEUMONIA [None]
  - DIARRHOEA [None]
